FAERS Safety Report 24878152 (Version 2)
Quarter: 2025Q1

REPORT INFORMATION
  Report Type: Spontaneous
  Country: ZA (occurrence: ZA)
  Receive Date: 20250123
  Receipt Date: 20250317
  Transmission Date: 20250409
  Serious: Yes (Other)
  Sender: BAYER HEALTHCARE PHARMACEUTICALS INC.
  Company Number: ZA-BAYER-2025A008260

PATIENT
  Age: 59 Year
  Sex: Female

DRUGS (27)
  1. ANGELIQ [Suspect]
     Active Substance: DROSPIRENONE\ESTRADIOL
     Dosage: 1 DF, QD
     Route: 048
  2. DORMONOCT [Concomitant]
     Active Substance: LOPRAZOLAM
     Dosage: 2 MG, QD
     Route: 048
  3. MELATONIN [Concomitant]
     Active Substance: MELATONIN
     Dosage: 2 MG, QD
     Route: 048
  4. DESLORATADINE [Concomitant]
     Active Substance: DESLORATADINE
     Dosage: 5 MG, BID
     Route: 048
  5. EUTHYROX [Concomitant]
     Active Substance: LEVOTHYROXINE SODIUM
     Dosage: 100 MG, QD
     Route: 048
  6. GABAPENTIN [Concomitant]
     Active Substance: GABAPENTIN
     Dosage: 400 MG, BID
     Route: 048
  7. SULFASALAZINE [Concomitant]
     Active Substance: SULFASALAZINE
     Dosage: 500 MG, BID
     Route: 048
  8. DULOXETINE HYDROCHLORIDE [Concomitant]
     Active Substance: DULOXETINE HYDROCHLORIDE
     Dosage: 60 MG, BID
     Route: 048
  9. METHOTREXATE SODIUM [Concomitant]
     Active Substance: METHOTREXATE SODIUM
     Route: 058
  10. LAMOTRIGINE [Concomitant]
     Active Substance: LAMOTRIGINE
     Dosage: 200 MG, QD
     Route: 048
  11. ROSUVASTATIN [Concomitant]
     Active Substance: ROSUVASTATIN
     Dosage: 5 MG, QD
     Route: 048
  12. ESOMEPRAZOLE [Concomitant]
     Active Substance: ESOMEPRAZOLE
     Dosage: 40 MG, QD
     Route: 048
  13. LEFLUNOMIDE [Concomitant]
     Active Substance: LEFLUNOMIDE
     Route: 048
  14. CYCLOBENZAPRINE HYDROCHLORIDE [Concomitant]
     Active Substance: CYCLOBENZAPRINE HYDROCHLORIDE
     Route: 048
  15. Stilpane [Concomitant]
     Dosage: UNK UNK, BID
     Route: 048
  16. Synaleve [Concomitant]
     Dosage: UNK UNK, BID
     Route: 048
  17. Synaleve [Concomitant]
     Dosage: UNK, TID
     Route: 048
  18. NALOXONE HYDROCHLORIDE\OXYCODONE HYDROCHLORIDE [Concomitant]
     Active Substance: NALOXONE HYDROCHLORIDE\OXYCODONE HYDROCHLORIDE
     Dosage: 5 MG, QD
     Route: 048
  19. GLUCOPHAGE XR [Concomitant]
     Active Substance: METFORMIN HYDROCHLORIDE
     Dosage: 1000 MG, QD
     Route: 048
  20. Optisulin [Concomitant]
     Dosage: 100 IU, QD
     Route: 058
  21. ERGOCALCIFEROL [Concomitant]
     Active Substance: ERGOCALCIFEROL
     Dosage: 50000 IU, QD
     Route: 048
  22. FOLIC ACID [Concomitant]
     Active Substance: FOLIC ACID
     Route: 048
  23. Novapraz xr [Concomitant]
     Dosage: 0.5 MG, QD
     Route: 048
  24. MELATONIN [Concomitant]
     Active Substance: MELATONIN
     Dosage: 2 MG, QD
     Route: 048
  25. Beriglobin p [Concomitant]
     Route: 058
  26. LEVOCETIRIZINE DIHYDROCHLORIDE [Concomitant]
     Active Substance: LEVOCETIRIZINE DIHYDROCHLORIDE
     Route: 048
  27. XELJANZ [Concomitant]
     Active Substance: TOFACITINIB CITRATE
     Dosage: 1 DF, BID
     Route: 048

REACTIONS (3)
  - Spinal operation [None]
  - Neck surgery [None]
  - Gait inability [None]
